FAERS Safety Report 15302671 (Version 1)
Quarter: 2018Q3

REPORT INFORMATION
  Report Type: Spontaneous
  Country: US (occurrence: US)
  Receive Date: 20180821
  Receipt Date: 20180821
  Transmission Date: 20181010
  Serious: No
  Sender: FDA-Public Use
  Company Number: US-BIOMARINAP-US-2018-119410

PATIENT
  Sex: Male
  Weight: 11 kg

DRUGS (1)
  1. VIMIZIM [Suspect]
     Active Substance: ELOSULFASE ALFA
     Indication: MUCOPOLYSACCHARIDOSIS IV
     Dosage: UNK, QW
     Route: 042
     Dates: start: 20170420

REACTIONS (3)
  - Diarrhoea [Recovering/Resolving]
  - Gastroenteritis viral [Unknown]
  - Pyrexia [Recovering/Resolving]
